FAERS Safety Report 16868635 (Version 1)
Quarter: 2019Q3

REPORT INFORMATION
  Report Type: Report from Study
  Country: None (occurrence: US)
  Receive Date: 20190930
  Receipt Date: 20190930
  Transmission Date: 20191005
  Serious: Yes (Death, Other)
  Sender: FDA-Public Use
  Company Number: US-ABBVIE-19K-163-2944919-00

PATIENT
  Age: 59 Year
  Sex: Male

DRUGS (1)
  1. MAVYRET [Suspect]
     Active Substance: GLECAPREVIR\PIBRENTASVIR
     Indication: HEPATITIS C
     Dosage: 100/40MG
     Route: 048
     Dates: start: 20190923

REACTIONS (3)
  - General physical condition abnormal [Unknown]
  - Prostate cancer [Unknown]
  - Death [Fatal]

NARRATIVE: CASE EVENT DATE: 201909
